FAERS Safety Report 24652208 (Version 1)
Quarter: 2024Q4

REPORT INFORMATION
  Report Type: Spontaneous
  Country: BE (occurrence: BE)
  Receive Date: 20241122
  Receipt Date: 20241122
  Transmission Date: 20250114
  Serious: Yes (Hospitalization, Other)
  Sender: AMGEN
  Company Number: BE-AMGEN-BELSP2024230019

PATIENT
  Sex: Male

DRUGS (2)
  1. BEVACIZUMAB [Suspect]
     Active Substance: BEVACIZUMAB
     Indication: Hepatocellular carcinoma
     Dosage: UNK
     Route: 065
  2. ATEZOLIZUMAB [Suspect]
     Active Substance: ATEZOLIZUMAB
     Indication: Hepatocellular carcinoma
     Route: 065

REACTIONS (8)
  - Pigment nephropathy [Unknown]
  - Cardiac failure [Unknown]
  - Hepatic function abnormal [Unknown]
  - Delirium [Unknown]
  - Chronic kidney disease [Unknown]
  - Pneumonia [Unknown]
  - Rhabdomyolysis [Unknown]
  - Disease progression [Unknown]
